FAERS Safety Report 24392702 (Version 2)
Quarter: 2024Q4

REPORT INFORMATION
  Report Type: Spontaneous
  Country: RO (occurrence: RO)
  Receive Date: 20241003
  Receipt Date: 20241104
  Transmission Date: 20250114
  Serious: Yes (Hospitalization)
  Sender: TEVA
  Company Number: RO-TEVA-VS-3247847

PATIENT
  Age: 38 Year
  Sex: Male

DRUGS (1)
  1. PALIPERIDONE [Suspect]
     Active Substance: PALIPERIDONE
     Indication: Schizophrenia
     Route: 065
     Dates: start: 20240801

REACTIONS (5)
  - Schizophrenia [Unknown]
  - Psychiatric decompensation [Unknown]
  - Psychotic disorder [Unknown]
  - Drug ineffective [Unknown]
  - Product substitution issue [Unknown]

NARRATIVE: CASE EVENT DATE: 20240101
